FAERS Safety Report 19117047 (Version 1)
Quarter: 2021Q2

REPORT INFORMATION
  Report Type: Spontaneous
  Country: GB (occurrence: GB)
  Receive Date: 20210409
  Receipt Date: 20210409
  Transmission Date: 20210717
  Serious: Yes (Other)
  Sender: FDA-Public Use
  Company Number: GB-PFIZER INC-2021338083

PATIENT
  Age: 75 Year
  Sex: Female
  Weight: 97.9 kg

DRUGS (4)
  1. ZEROBASE [PARAFFIN, LIQUID] [Concomitant]
     Indication: ILL-DEFINED DISORDER
  2. PERINDOPRIL [Concomitant]
     Active Substance: PERINDOPRIL
     Indication: ILL-DEFINED DISORDER
  3. DALTEPARIN SODIUM [Suspect]
     Active Substance: DALTEPARIN SODIUM
     Indication: THROMBOSIS PROPHYLAXIS
     Dosage: 18,000 UNITS
     Route: 058
     Dates: start: 20210130, end: 20210308
  4. BENDROFLUMETHIAZIDE [Concomitant]
     Active Substance: BENDROFLUMETHIAZIDE
     Indication: ILL-DEFINED DISORDER

REACTIONS (1)
  - Administration site rash [Recovered/Resolved]

NARRATIVE: CASE EVENT DATE: 20210308
